FAERS Safety Report 17022493 (Version 1)
Quarter: 2019Q4

REPORT INFORMATION
  Report Type: Spontaneous
  Country: GB (occurrence: GB)
  Receive Date: 20191112
  Receipt Date: 20191112
  Transmission Date: 20200122
  Serious: Yes (Other)
  Sender: FDA-Public Use
  Company Number: GB-JNJFOC-20191047931

PATIENT
  Age: 70 Year
  Sex: Female
  Weight: 59.4 kg

DRUGS (1)
  1. STELARA [Suspect]
     Active Substance: USTEKINUMAB
     Indication: CROHN^S DISEASE
     Dosage: EFFECTIVE FOR 3 MONTHS. 4 INJECTIONS IN TOTAL.
     Route: 058
     Dates: start: 20170405, end: 20171018

REACTIONS (12)
  - Sensory processing disorder [Recovering/Resolving]
  - Personality change [Recovering/Resolving]
  - Balance disorder [Recovering/Resolving]
  - Dizziness [Recovering/Resolving]
  - Amnesia [Recovering/Resolving]
  - Fatigue [Recovering/Resolving]
  - Headache [Recovering/Resolving]
  - Feeling abnormal [Recovering/Resolving]
  - Gait disturbance [Recovering/Resolving]
  - Fine motor skill dysfunction [Recovering/Resolving]
  - Coordination abnormal [Recovering/Resolving]
  - Depression [Recovering/Resolving]

NARRATIVE: CASE EVENT DATE: 20170414
